FAERS Safety Report 6245586-X (Version None)
Quarter: 2009Q2

REPORT INFORMATION
  Report Type: 
  Country: None (occurrence: None)
  Receive Date: 20090619
  Receipt Date: 20090515
  Transmission Date: 20091009
  Serious: No
  Sender: FDA-Public Use
  Company Number: ALL1-2009-01388

PATIENT
  Age: 12 Year
  Sex: Male
  Weight: 38.1 kg

DRUGS (2)
  1. VYVANSE [Suspect]
     Indication: ATTENTION DEFICIT/HYPERACTIVITY DISORDER
     Dosage: 20 MG, 1X/DAY:QD, ORAL ; 40 MG, 1X/DAY:QD, ORAL
     Route: 048
     Dates: start: 20090201, end: 20090301
  2. VYVANSE [Suspect]
     Indication: ATTENTION DEFICIT/HYPERACTIVITY DISORDER
     Dosage: 20 MG, 1X/DAY:QD, ORAL ; 40 MG, 1X/DAY:QD, ORAL
     Route: 048
     Dates: start: 20090301

REACTIONS (7)
  - AGITATION [None]
  - DECREASED APPETITE [None]
  - DRUG EFFECT DECREASED [None]
  - EAR ABRASION [None]
  - ERYTHEMA [None]
  - IMPULSIVE BEHAVIOUR [None]
  - WEIGHT DECREASED [None]
